FAERS Safety Report 7257879-8 (Version None)
Quarter: 2011Q1

REPORT INFORMATION
  Report Type: 
  Country: None (occurrence: None)
  Receive Date: 20110129
  Receipt Date: 20100621
  Transmission Date: 20110831
  Serious: No
  Sender: FDA-Public Use
  Company Number: US-ABBOTT-10P-163-0647512-00

PATIENT
  Sex: Female
  Weight: 108.96 kg

DRUGS (9)
  1. ABILIFY [Concomitant]
     Indication: DEPRESSION
  2. SIMVASTATIN [Concomitant]
     Indication: PRODUCT USED FOR UNKNOWN INDICATION
  3. HUMIRA [Suspect]
     Indication: PSORIATIC ARTHROPATHY
  4. CELEBREX [Concomitant]
     Indication: PAIN
  5. SYNTHROID [Concomitant]
     Indication: HYPOTHYROIDISM
  6. EFFEXOR XR [Concomitant]
     Indication: DEPRESSION
  7. CLOBETASOL [Concomitant]
     Indication: PSORIASIS
  8. HUMIRA [Suspect]
     Indication: RHEUMATOID ARTHRITIS
     Dates: start: 20091101
  9. VYVANSE [Concomitant]
     Indication: ATTENTION DEFICIT/HYPERACTIVITY DISORDER

REACTIONS (3)
  - RHEUMATOID ARTHRITIS [None]
  - WRONG TECHNIQUE IN DRUG USAGE PROCESS [None]
  - DRUG DOSE OMISSION [None]
